FAERS Safety Report 4368038-0 (Version None)
Quarter: 2004Q2

REPORT INFORMATION
  Report Type: 
  Country: None (occurrence: None)
  Receive Date: 20040602
  Receipt Date: 20040514
  Transmission Date: 20050107
  Serious: Yes (Life-Threatening, Hospitalization)
  Sender: FDA-Public Use
  Company Number: US-BRISTOL-MYERS SQUIBB COMPANY-12586970

PATIENT
  Age: 19 Year
  Sex: Male
  Weight: 82 kg

DRUGS (4)
  1. ABILIFY [Suspect]
     Indication: SCHIZOPHRENIA
     Dosage: 1/2 OF A 15 MG TABLET FROM 23-MAR-04 TO 24-MAR-04; INCREASED TO 15 MG/DAY ON 25-MAR-04
     Route: 048
     Dates: start: 20040323, end: 20040405
  2. RISPERIDONE [Concomitant]
     Route: 048
  3. ESKALITH [Concomitant]
     Route: 048
  4. BENZTROPINE MESYLATE [Concomitant]
     Indication: DYSKINESIA
     Route: 048

REACTIONS (5)
  - CANDIDIASIS [None]
  - METABOLIC ENCEPHALOPATHY [None]
  - NEUROLEPTIC MALIGNANT SYNDROME [None]
  - PNEUMONIA ASPIRATION [None]
  - RESPIRATORY FAILURE [None]
